FAERS Safety Report 24346180 (Version 1)
Quarter: 2024Q3

REPORT INFORMATION
  Report Type: Spontaneous
  Country: US (occurrence: US)
  Receive Date: 20240921
  Receipt Date: 20240921
  Transmission Date: 20241016
  Serious: No
  Sender: AUROBINDO
  Company Number: US-AUROBINDO-AUR-APL-2024-010752

PATIENT
  Sex: Male

DRUGS (1)
  1. ALENDRONATE SODIUM [Suspect]
     Active Substance: ALENDRONATE SODIUM
     Indication: Product used for unknown indication
     Dosage: 70 MILLIGRAM ONCE A WEEK
     Route: 065

REACTIONS (7)
  - Nail infection [Recovered/Resolved]
  - Erythema [Unknown]
  - Inflammation [Unknown]
  - Onychalgia [Recovered/Resolved]
  - Product packaging issue [Unknown]
  - Product packaging difficult to open [Unknown]
  - Physical product label issue [Unknown]
